FAERS Safety Report 4927978-1 (Version None)
Quarter: 2006Q1

REPORT INFORMATION
  Report Type: 
  Country: None (occurrence: None)
  Receive Date: 20060223
  Receipt Date: 20060207
  Transmission Date: 20060701
  Serious: Yes (Congenital Anomaly)
  Sender: FDA-Public Use
  Company Number: S06-DEN-00622-02

PATIENT
  Sex: Male
  Weight: 3.06 kg

DRUGS (1)
  1. AKARIN (CITALOPRAM) [Suspect]
     Dosage: 10 MG QD TRANSPLACENTAL
     Route: 064

REACTIONS (2)
  - DRUG EXPOSURE DURING PREGNANCY [None]
  - POLYDACTYLY [None]
